FAERS Safety Report 10417628 (Version 1)
Quarter: 2014Q3

REPORT INFORMATION
  Report Type: Spontaneous
  Country: US (occurrence: None)
  Receive Date: 20140828
  Receipt Date: 20140828
  Transmission Date: 20150326
  Serious: Yes (Other)
  Sender: FDA-Public Use
  Company Number: None

PATIENT
  Age: 35 Year
  Sex: Male
  Weight: 89.4 kg

DRUGS (11)
  1. DOCUSATE SODIUM. [Concomitant]
     Active Substance: DOCUSATE SODIUM
  2. RILUZOLE. [Concomitant]
     Active Substance: RILUZOLE
  3. MORPHINE PCA [Concomitant]
  4. PREDNISONE. [Concomitant]
     Active Substance: PREDNISONE
  5. TACROLIMUS. [Suspect]
     Active Substance: TACROLIMUS
     Indication: IMMUNOSUPPRESSANT DRUG THERAPY
     Dosage: 3 PILLS BID ORAL
     Route: 048
     Dates: start: 20140607, end: 20140626
  6. REGULAR INSULIN [Concomitant]
     Active Substance: INSULIN NOS
  7. MYCOPHENOLATE MOFETIL. [Concomitant]
     Active Substance: MYCOPHENOLATE MOFETIL
  8. DIAZEPAM. [Concomitant]
     Active Substance: DIAZEPAM
  9. BASILIXIMAB [Concomitant]
     Active Substance: BASILIXIMAB
  10. TACROLIMUS. [Suspect]
     Active Substance: TACROLIMUS
     Indication: IMMUNOSUPPRESSANT DRUG THERAPY
     Dosage: 4 PILLS BID ORAL
     Route: 048
     Dates: start: 20140605, end: 20140607
  11. FAMOTIDINE. [Concomitant]
     Active Substance: FAMOTIDINE

REACTIONS (1)
  - Diabetes mellitus [None]

NARRATIVE: CASE EVENT DATE: 20140626
